FAERS Safety Report 8556265-8 (Version None)
Quarter: 2012Q3

REPORT INFORMATION
  Report Type: 
  Country: None (occurrence: None)
  Receive Date: 20120801
  Receipt Date: 20120730
  Transmission Date: 20120928
  Serious: No
  Sender: FDA-Public Use
  Company Number: US-PFIZER INC-2012142065

PATIENT
  Sex: Female
  Weight: 72.562 kg

DRUGS (3)
  1. CHANTIX [Suspect]
     Indication: SMOKING CESSATION THERAPY
     Dosage: UNK
     Route: 048
     Dates: start: 20110101, end: 20120101
  2. CHANTIX [Suspect]
     Dosage: 0.5 MG, DAILY
     Route: 048
     Dates: start: 20120525, end: 20120101
  3. CHANTIX [Suspect]
     Dosage: UNK
     Dates: start: 20120101, end: 20120611

REACTIONS (3)
  - HYPERSENSITIVITY [None]
  - EXPIRED DRUG ADMINISTERED [None]
  - OEDEMA [None]
